FAERS Safety Report 12957928 (Version 2)
Quarter: 2016Q4

REPORT INFORMATION
  Report Type: Spontaneous
  Country: JP (occurrence: JP)
  Receive Date: 20161118
  Receipt Date: 20161129
  Transmission Date: 20170207
  Serious: Yes (Other)
  Sender: FDA-Public Use
  Company Number: JP-ASTRAZENECA-2016SF22295

PATIENT
  Sex: Male

DRUGS (3)
  1. ZOLADEX LA [Suspect]
     Active Substance: GOSERELIN ACETATE
     Route: 058
     Dates: end: 20161111
  2. GONAX [Concomitant]
     Active Substance: DEGARELIX
     Indication: PROSTATE CANCER
     Dosage: DOSE UNKNOWN
     Route: 065
     Dates: start: 20150904, end: 20161111
  3. CASODEX [Suspect]
     Active Substance: BICALUTAMIDE
     Indication: PROSTATE CANCER
     Route: 048
     Dates: start: 20150904, end: 20161111

REACTIONS (1)
  - Malignant neoplasm progression [Unknown]
